FAERS Safety Report 8792943 (Version 2)
Quarter: 2012Q4

REPORT INFORMATION
  Report Type: 
  Country: JP (occurrence: JP)
  Receive Date: 20120918
  Receipt Date: 20121015
  Transmission Date: 20130627
  Serious: Yes (Other)
  Sender: FDA-Public Use
  Company Number: JP-TEVA-359341USA

PATIENT
  Age: 70 Year
  Sex: Male
  Weight: 56 kg

DRUGS (6)
  1. TREANDA [Suspect]
     Indication: B-CELL LYMPHOMA
     Dosage: UID/QD
     Route: 042
     Dates: start: 20120301, end: 20120622
  2. RITUXIMAB [Concomitant]
     Indication: B-CELL LYMPHOMA
     Dosage: 375 mg/m2 Daily;
     Dates: start: 20120229
  3. ENTECAVIR MONOHYDRATE [Concomitant]
     Indication: VIRAL HEPATITIS CARRIER
     Dosage: .5 Milligram Daily;
     Dates: start: 20090814
  4. ACICLOVIR [Concomitant]
     Indication: PROPHYLAXIS
     Dosage: 400 Milligram Daily;
     Dates: start: 20120229
  5. SULFAMETHOXAZOLE W/TRIMETHOPRIM [Concomitant]
     Indication: INFECTION PROPHYLAXIS
     Dosage: 1 Gram Daily;
     Dates: start: 20120229, end: 20120809
  6. GRANISETRON HYDROCHLORIDE [Concomitant]
     Indication: PROPHYLAXIS OF NAUSEA AND VOMITING
     Dosage: 3 Milligram Daily;
     Dates: start: 20120301

REACTIONS (1)
  - Pulmonary tuberculosis [Not Recovered/Not Resolved]
